FAERS Safety Report 7213829-1 (Version None)
Quarter: 2011Q1

REPORT INFORMATION
  Report Type: 
  Country: None (occurrence: None)
  Receive Date: 20110106
  Receipt Date: 20101216
  Transmission Date: 20110831
  Serious: Yes (Other)
  Sender: FDA-Public Use
  Company Number: PHHY2010NL86168

PATIENT
  Sex: Female

DRUGS (2)
  1. SANDOSTATIN [Suspect]
     Dosage: 10 MG, QMO
  2. SANDOSTATIN [Suspect]
     Indication: CARCINOID TUMOUR
     Dosage: THREE TIMES PER DAY

REACTIONS (3)
  - ABDOMINAL PAIN [None]
  - MALIGNANT TUMOUR EXCISION [None]
  - INJECTION SITE INDURATION [None]
